FAERS Safety Report 12326928 (Version 8)
Quarter: 2017Q4

REPORT INFORMATION
  Report Type: Spontaneous
  Country: US (occurrence: US)
  Receive Date: 20160503
  Receipt Date: 20171206
  Transmission Date: 20180320
  Serious: Yes (Other)
  Sender: FDA-Public Use
  Company Number: US-PFIZER INC-2016231542

PATIENT
  Age: 75 Year
  Sex: Female
  Weight: 57 kg

DRUGS (17)
  1. IBRANCE [Suspect]
     Active Substance: PALBOCICLIB
     Indication: BREAST CANCER METASTATIC
     Dosage: 125 MG, CYCLIC (125 MG, DAYS 1-21 Q 28 D/21 DAYS ON, 7 D OFF)
     Route: 048
     Dates: start: 20160122, end: 20170807
  2. IBRANCE [Suspect]
     Active Substance: PALBOCICLIB
     Dosage: 125 MG, CYCLIC (ONCE A DAY, FOR 21 DAYS AND OFF FOR 1 WEEK)
     Route: 048
     Dates: start: 20160123
  3. CARVEDILOL. [Concomitant]
     Active Substance: CARVEDILOL
     Indication: CARDIOMYOPATHY
     Dosage: 6.25 MG, ONCE A DAY
     Route: 048
     Dates: start: 201504
  4. CARVEDILOL. [Concomitant]
     Active Substance: CARVEDILOL
     Dosage: 18.75 MG, DAILY (6.25MG IN THE MORNING AND 12.5MG IN THE EVENING)
     Dates: start: 201504
  5. TRAZODONE [Concomitant]
     Active Substance: TRAZODONE HYDROCHLORIDE
     Indication: SLEEP DISORDER
     Dosage: 50 MG, ONCE A DAY (AT NIGHT)
     Route: 048
     Dates: start: 2005
  6. LETROZOLE APOTEX [Concomitant]
     Indication: BREAST CANCER METASTATIC
     Dosage: 2.5 MG, ONCE A DAY
     Dates: start: 201607
  7. BENICAR HCT [Concomitant]
     Active Substance: HYDROCHLOROTHIAZIDE\OLMESARTAN MEDOXOMIL
     Indication: BLOOD PRESSURE ABNORMAL
     Dosage: 40/12.5MG, ONCE A DAY
     Route: 048
     Dates: start: 2005
  8. IBRANCE [Suspect]
     Active Substance: PALBOCICLIB
     Dosage: 125 MG, CYCLIC (125 MG CAPSULES, ONCE A DAY FOR 21 OF 28 DAYS)
     Route: 048
     Dates: start: 201601, end: 20170731
  9. OMEPRAZOLE. [Concomitant]
     Active Substance: OMEPRAZOLE
     Indication: DYSPEPSIA
     Dosage: 1 DF, UNK
  10. OMEPRAZOLE. [Concomitant]
     Active Substance: OMEPRAZOLE
     Indication: GASTROOESOPHAGEAL REFLUX DISEASE
     Dosage: 20 MG, ONCE A DAY
     Route: 048
     Dates: start: 2007
  11. NASONEX [Concomitant]
     Active Substance: MOMETASONE FUROATE
     Indication: HYPERSENSITIVITY
     Dosage: UNK UNK, 1X/DAY (2 SPRAYS EACH NOSTRIL ONCE A DAY)
  12. LETROZOLE TEVA [Suspect]
     Active Substance: LETROZOLE
     Indication: BREAST CANCER METASTATIC
     Dosage: 2.5 MG, ONCE A DAY
     Route: 048
     Dates: start: 20160123
  13. FLONASE [Concomitant]
     Active Substance: FLUTICASONE PROPIONATE
     Dosage: UNK
  14. ALPRAZOLAM. [Concomitant]
     Active Substance: ALPRAZOLAM
     Dosage: 0.25 MG, AS NEEDED (ONLY USE ON OCCASION)
  15. HYDROCHLOROTHIAZIDE/OLMESARTAN MEDOXOMIL [Concomitant]
     Indication: BLOOD PRESSURE ABNORMAL
     Dosage: UNK, (HYDROCHLOROTHIAZIDE 40MG, OLMESARTAN MEDOXOMIL 12.5MG)
  16. IBRANCE [Suspect]
     Active Substance: PALBOCICLIB
     Dosage: 125 MG, CYCLIC (21/28 1X/DAY)
     Dates: start: 201601
  17. CLARITIN [Concomitant]
     Active Substance: LORATADINE
     Dosage: 10 MG, ONCE A DAY

REACTIONS (14)
  - Throat tightness [Recovered/Resolved]
  - Dry eye [Unknown]
  - Stomatitis [Recovering/Resolving]
  - Dry throat [Recovered/Resolved]
  - Dyspnoea [Not Recovered/Not Resolved]
  - Anxiety [Recovered/Resolved]
  - Syncope [Unknown]
  - Cataract [Recovered/Resolved with Sequelae]
  - Neoplasm progression [Unknown]
  - Diarrhoea [Recovering/Resolving]
  - Asthenia [Recovering/Resolving]
  - Fatigue [Recovered/Resolved]
  - Myalgia [Unknown]
  - Nausea [Recovering/Resolving]

NARRATIVE: CASE EVENT DATE: 201601
